FAERS Safety Report 20831623 (Version 1)
Quarter: 2022Q2

REPORT INFORMATION
  Report Type: Spontaneous
  Country: US (occurrence: US)
  Receive Date: 20220516
  Receipt Date: 20220516
  Transmission Date: 20220720
  Serious: Yes (Hospitalization)
  Sender: FDA-Public Use
  Company Number: US-PURACAP-US-2022EPCSPO00268

PATIENT
  Age: 75 Year
  Sex: Male
  Weight: 140 kg

DRUGS (3)
  1. ULTRA STRENGTH GAS RELIEF [Suspect]
     Active Substance: DIMETHICONE
     Indication: Gastrointestinal disorder therapy
     Route: 048
     Dates: start: 20220430, end: 20220501
  2. CARDIZEM CD [Concomitant]
     Active Substance: DILTIAZEM HYDROCHLORIDE
     Indication: Product used for unknown indication
     Route: 065
  3. METOPROLOL [Concomitant]
     Active Substance: METOPROLOL
     Indication: Product used for unknown indication
     Route: 065

REACTIONS (3)
  - Atrial fibrillation [Not Recovered/Not Resolved]
  - Abdominal pain upper [Not Recovered/Not Resolved]
  - Drug ineffective [Unknown]

NARRATIVE: CASE EVENT DATE: 20220430
